FAERS Safety Report 10684926 (Version 1)
Quarter: 2014Q4

REPORT INFORMATION
  Report Type: Spontaneous
  Country: US (occurrence: None)
  Receive Date: 20141230
  Receipt Date: 20141230
  Transmission Date: 20150529
  Serious: Yes (Other)
  Sender: FDA-Public Use
  Company Number: None

PATIENT
  Age: 73 Year
  Sex: Female
  Weight: 102.06 kg

DRUGS (1)
  1. TORADOL [Suspect]
     Active Substance: KETOROLAC TROMETHAMINE

REACTIONS (5)
  - Blood urine present [None]
  - Vomiting [None]
  - Back pain [None]
  - Dyspnoea [None]
  - Diarrhoea [None]

NARRATIVE: CASE EVENT DATE: 20141224
